FAERS Safety Report 10488522 (Version 1)
Quarter: 2014Q4

REPORT INFORMATION
  Report Type: Spontaneous
  Country: US (occurrence: None)
  Receive Date: 20141001
  Receipt Date: 20141001
  Transmission Date: 20150528
  Serious: No
  Sender: FDA-Public Use
  Company Number: None

PATIENT
  Age: 39 Year
  Sex: Male
  Weight: 102.06 kg

DRUGS (1)
  1. CHANTIX [Suspect]
     Active Substance: VARENICLINE TARTRATE
     Indication: SMOKING CESSATION THERAPY
     Dosage: STARTING PACK; ONCE DAILY
     Route: 048
     Dates: start: 20140922, end: 20140926

REACTIONS (8)
  - Abdominal discomfort [None]
  - Hallucination [None]
  - Agitation [None]
  - Fatigue [None]
  - Feeling jittery [None]
  - Psychotic disorder [None]
  - Suicidal ideation [None]
  - Memory impairment [None]

NARRATIVE: CASE EVENT DATE: 20140926
